FAERS Safety Report 9742751 (Version 2)
Quarter: 2013Q4

REPORT INFORMATION
  Report Type: Spontaneous
  Country: US (occurrence: US)
  Receive Date: 20131210
  Receipt Date: 20131210
  Transmission Date: 20140711
  Serious: No
  Sender: FDA-Public Use
  Company Number: US-GILEAD-2009-0025920

PATIENT
  Age: 49 Year
  Sex: Female

DRUGS (7)
  1. LETAIRIS [Suspect]
     Indication: PULMONARY ARTERIAL HYPERTENSION
     Route: 048
     Dates: start: 20080715, end: 20091109
  2. PREDNISONE [Concomitant]
  3. PLAQUENIL [Concomitant]
  4. PRILOSEC [Concomitant]
  5. VITAMIN D [Concomitant]
  6. IRON [Concomitant]
  7. CENTRUM [Concomitant]

REACTIONS (3)
  - Hepatitis toxic [Recovered/Resolved]
  - Liver function test abnormal [Recovered/Resolved]
  - Anosmia [Recovering/Resolving]
